FAERS Safety Report 6859082-X (Version None)
Quarter: 2010Q3

REPORT INFORMATION
  Report Type: 
  Country: None (occurrence: None)
  Receive Date: 20100719
  Receipt Date: 20080418
  Transmission Date: 20110219
  Serious: No
  Sender: FDA-Public Use
  Company Number: US-PFIZER INC-2008016575

PATIENT
  Sex: Male
  Weight: 81.8 kg

DRUGS (1)
  1. CHANTIX [Suspect]
     Indication: SMOKING CESSATION THERAPY
     Dates: start: 20080121, end: 20080127

REACTIONS (4)
  - BACK PAIN [None]
  - DIARRHOEA [None]
  - FATIGUE [None]
  - SOMNOLENCE [None]
